FAERS Safety Report 6052135-8 (Version None)
Quarter: 2009Q1

REPORT INFORMATION
  Report Type: 
  Country: None (occurrence: None)
  Receive Date: 20090126
  Receipt Date: 20090117
  Transmission Date: 20090719
  Serious: Yes (Hospitalization, Other)
  Sender: FDA-Public Use
  Company Number: US-B.I. PHARMACEUTICALS,INC./RIDGEFIELD-2009-BP-00687BP

PATIENT
  Sex: Female

DRUGS (5)
  1. DULCOLAX [Suspect]
     Indication: CONSTIPATION
     Dosage: 5MG
     Route: 048
  2. TYLENOL W/ CODEINE NO. 3 [Concomitant]
  3. UNSPECIFIED MEDICATIONS [Concomitant]
     Indication: HYPERTENSION
  4. UNSPECIFIED MEDICATIONS FOR DIABETES [Concomitant]
     Indication: DIABETES MELLITUS
  5. UNSPECIFIED MEDICATION [Concomitant]
     Indication: CARDIAC FAILURE CONGESTIVE

REACTIONS (4)
  - ABDOMINAL PAIN UPPER [None]
  - CARDIAC OPERATION [None]
  - DRUG INEFFECTIVE [None]
  - MYOCARDIAL INFARCTION [None]
